FAERS Safety Report 7766590-6 (Version None)
Quarter: 2011Q3

REPORT INFORMATION
  Report Type: 
  Country: None (occurrence: None)
  Receive Date: 20110922
  Receipt Date: 20110910
  Transmission Date: 20111222
  Serious: Yes (Other)
  Sender: FDA-Public Use
  Company Number: IT-PAR PHARMACEUTICAL, INC-2011SCPR003238

PATIENT

DRUGS (3)
  1. CARBIDOPA [Concomitant]
     Indication: PARKINSON'S DISEASE
     Dosage: UNK, UNKNOWN
     Route: 065
  2. PERGOLIDE MESYLATE [Suspect]
     Indication: PARKINSON'S DISEASE
     Dosage: UNK, UNKNOWN
     Route: 065
  3. LEVODOPA [Concomitant]
     Indication: PARKINSON'S DISEASE
     Dosage: UNK, UNKNOWN
     Route: 065

REACTIONS (3)
  - PERICARDIAL FIBROSIS [None]
  - BENIGN PROSTATIC HYPERPLASIA [None]
  - RETROPERITONEAL FIBROSIS [None]
